FAERS Safety Report 4845432-2 (Version None)
Quarter: 2005Q4

REPORT INFORMATION
  Report Type: 
  Country: None (occurrence: None)
  Receive Date: 20051125
  Receipt Date: 20051111
  Transmission Date: 20060501
  Serious: Yes (Hospitalization)
  Sender: FDA-Public Use
  Company Number: HQWYE838807SEP04

PATIENT
  Age: 56 Year
  Sex: Male

DRUGS (7)
  1. RAPAMUNE [Suspect]
     Indication: IMMUNOSUPPRESSANT DRUG THERAPY
     Dosage: 2 MG 1X PER 1DAY
     Route: 048
     Dates: start: 20040707
  2. RAPAMUNE [Suspect]
     Indication: PROPHYLAXIS AGAINST TRANSPLANT REJECTION
     Dosage: 2 MG 1X PER 1DAY
     Route: 048
     Dates: start: 20040707
  3. PREDNISONE [Concomitant]
  4. SULFAMETHOXAZOLE W/TRIMETHOPRIM (SULFAMETHOXAZOLE W/TRIMETHOPRIM ) [Concomitant]
  5. NYSTAIN (NYSTATIN) [Concomitant]
  6. ATENOLOL [Concomitant]
  7. SIMVASTATIN (SIMVATATIN) [Concomitant]

REACTIONS (4)
  - KIDNEY TRANSPLANT REJECTION [None]
  - PNEUMONIA [None]
  - RENAL FAILURE ACUTE [None]
  - THERAPY NON-RESPONDER [None]
